FAERS Safety Report 5264802-4 (Version None)
Quarter: 2007Q1

REPORT INFORMATION
  Report Type: 
  Country: None (occurrence: None)
  Receive Date: 20061117
  Receipt Date: 20060821
  Transmission Date: 20070707
  Serious: Yes (Disabling)
  Sender: FDA-Public Use
  Company Number: US-JNJFOC-20060804964

PATIENT
  Sex: Female

DRUGS (3)
  1. LEVAQUIN [Suspect]
     Indication: BRONCHITIS
     Dosage: 750 MG
     Dates: end: 20060601
  2. LEVAQUIN [Suspect]
     Indication: LUNG INFECTION
     Dosage: 750 MG
     Dates: end: 20060601
  3. LEVAQUIN [Suspect]
     Indication: SINUSITIS
     Dosage: 750 MG
     Dates: end: 20060601

REACTIONS (1)
  - TENDONITIS [None]
